FAERS Safety Report 9524308 (Version 2)
Quarter: 2013Q4

REPORT INFORMATION
  Report Type: Spontaneous
  Country: FR (occurrence: None)
  Receive Date: 20130912
  Receipt Date: 20131001
  Transmission Date: 20140711
  Serious: Yes (Death, Life-Threatening, Hospitalization)
  Sender: FDA-Public Use
  Company Number: SYM-2013-10494

PATIENT
  Age: 72 Year
  Sex: Male

DRUGS (21)
  1. ZOVIRAX [Suspect]
     Indication: MUCOSAL INFLAMMATION
     Dates: start: 201306
  2. TORISEL [Suspect]
     Indication: RENAL CANCER
     Route: 042
     Dates: start: 20130531, end: 20130531
  3. ADVAGRAF [Suspect]
     Indication: PRODUCT USED FOR UNKNOWN INDICATION
     Route: 048
  4. MERONEM [Suspect]
     Indication: URINARY TRACT INFECTION
     Route: 042
     Dates: start: 20130524, end: 20130613
  5. VENTOLINE (SALBUTAMOL SULFATE) (SALBUTAMOL SULFATE) [Concomitant]
  6. AMLOR (AMLODIPINE BESILATE) (AMLODIPINE BESILATE) [Concomitant]
  7. RAMIPRIL (RAMIPRIL) (RAMIPRIL) [Concomitant]
  8. CARDENSIEL (ESOMEPRAZOLE MAGNESIUM) (ESOMEPRAZOLE MAGNESIUM) [Concomitant]
  9. KARDEGIC (ACETYLSALICYLATE LYSINE) (ACETYLSALICYLATE LYSINE) [Concomitant]
  10. INEXIUM (ESOMEPRAZOLE MAGNESIUM) (ESOMEPRAZOLE MAGNESIUM) [Concomitant]
  11. ELISOR (PRAVASTATINSODIUM) (PRAVASTATIN SODIUM) [Concomitant]
  12. UROREC (SILODOSIN) (SILODOSIN) [Concomitant]
  13. MYFORTIC (MYCOPHENOLATE SODIUM) (MYCOPHENOLATE SODIUM) [Concomitant]
  14. TAVANIC (LEVOFLOXACIN) (LEVOFLOXACIN) [Concomitant]
  15. ROCEPHINE (CEFTRIAXONE SODIUM) (CEFTRIAXONE SODIUM) [Concomitant]
  16. LOXEN (NICARDIPINE HYDROCHLORIDE) (NICARDIPINE HYDROCHLORIDE) [Concomitant]
  17. FUROSEMID (FUROSEMIDE) (FUROSEMIDE) [Concomitant]
  18. ACUPAN (NEFOPAM HYDROCHLORIDE) (NEFOPAM HYDROCHLORIDE) [Concomitant]
  19. INVANZ (ERTAPENEM SODIUM) (ERTAPENEM SODIUM) [Concomitant]
  20. AMIKACINE (AMIKACIN) (AMIKACIN) [Concomitant]
  21. CORTICOID (CORTICOSTEROIDS) (NULL) [Concomitant]

REACTIONS (7)
  - Respiratory distress [None]
  - Herpes virus infection [None]
  - Infective glossitis [None]
  - Thrombocytopenia [None]
  - Haemolysis [None]
  - Thrombotic microangiopathy [None]
  - Renal impairment [None]
